FAERS Safety Report 20438783 (Version 1)
Quarter: 2022Q1

REPORT INFORMATION
  Report Type: Report from Study
  Country: US (occurrence: US)
  Receive Date: 20220207
  Receipt Date: 20220207
  Transmission Date: 20220423
  Serious: Yes (Hospitalization, Other)
  Sender: FDA-Public Use
  Company Number: US-BAYER-2022A017904

PATIENT
  Age: 36 Year
  Sex: Male

DRUGS (1)
  1. STIVARGA [Suspect]
     Active Substance: REGORAFENIB
     Indication: Colorectal cancer
     Dosage: 160 MG, QD FOR 21 DAYS THEN 7 DAYS OFF
     Route: 048

REACTIONS (4)
  - Pyrexia [None]
  - Feeding disorder [None]
  - Blister [Unknown]
  - Asthenia [None]
